FAERS Safety Report 13132972 (Version 1)
Quarter: 2017Q1

REPORT INFORMATION
  Report Type: Spontaneous
  Country: US (occurrence: US)
  Receive Date: 20170119
  Receipt Date: 20170119
  Transmission Date: 20170428
  Serious: Yes (Disabling)
  Sender: FDA-Public Use
  Company Number: None

PATIENT
  Age: 39 Year
  Sex: Female
  Weight: 71.1 kg

DRUGS (1)
  1. NUVARING [Suspect]
     Active Substance: ETHINYL ESTRADIOL\ETONOGESTREL
     Indication: CONTRACEPTION
     Dosage: QUANTITY:1 RING;OTHER FREQUENCY:3 WKS ON, 1 WK OFF;?
     Route: 067
     Dates: start: 20161130, end: 20170111

REACTIONS (2)
  - Pain [None]
  - Uterine disorder [None]

NARRATIVE: CASE EVENT DATE: 20170111
